FAERS Safety Report 4771169-4 (Version None)
Quarter: 2005Q3

REPORT INFORMATION
  Report Type: 
  Country: None (occurrence: None)
  Receive Date: 20050912
  Receipt Date: 20050621
  Transmission Date: 20060218
  Serious: No
  Sender: FDA-Public Use
  Company Number: 2005-01325

PATIENT

DRUGS (1)
  1. VELCADE [Suspect]
     Dosage: IV BOLUS
     Route: 040
     Dates: end: 20050620

REACTIONS (2)
  - EXTRAVASATION [None]
  - INJECTION SITE ERYTHEMA [None]
